FAERS Safety Report 5104331-1 (Version None)
Quarter: 2006Q3

REPORT INFORMATION
  Report Type: 
  Country: None (occurrence: None)
  Receive Date: 20060912
  Receipt Date: 20060912
  Transmission Date: 20061208
  Serious: Yes (Other)
  Sender: FDA-Public Use
  Company Number: None

PATIENT
  Age: 48 Year
  Sex: Male
  Weight: 114.76 kg

DRUGS (1)
  1. CLINDAMYCIN [Suspect]
     Indication: ARTHRITIS BACTERIAL
     Dosage: 450MG   TID   PO
     Route: 048

REACTIONS (3)
  - FACE OEDEMA [None]
  - RASH ERYTHEMATOUS [None]
  - RASH PRURITIC [None]
